FAERS Safety Report 9646499 (Version 1)
Quarter: 2013Q4

REPORT INFORMATION
  Report Type: Spontaneous
  Country: GB (occurrence: GB)
  Receive Date: 20131025
  Receipt Date: 20131025
  Transmission Date: 20140711
  Serious: Yes (Life-Threatening)
  Sender: FDA-Public Use
  Company Number: GB-ROCHE-1292713

PATIENT
  Age: 80 Year
  Sex: Female
  Weight: 58 kg

DRUGS (4)
  1. RITUXIMAB [Suspect]
     Indication: RHEUMATOID ARTHRITIS
     Route: 042
     Dates: start: 201204, end: 201304
  2. FOLIC ACID [Concomitant]
     Route: 065
  3. METHOTREXATE [Concomitant]
     Route: 065
  4. PREDNISOLONE [Concomitant]
     Route: 065

REACTIONS (1)
  - Ovarian cancer [Unknown]
